FAERS Safety Report 8192091-X (Version None)
Quarter: 2012Q1

REPORT INFORMATION
  Report Type: 
  Country: None (occurrence: None)
  Receive Date: 20120307
  Receipt Date: 20120301
  Transmission Date: 20120608
  Serious: Yes (Other)
  Sender: FDA-Public Use
  Company Number: BR-PFIZER INC-2012055599

PATIENT
  Sex: Female

DRUGS (6)
  1. PRISTIQ [Suspect]
     Indication: DEPRESSION
     Dosage: 50 MG, 1X/DAY
     Dates: start: 20120229
  2. PANTOPRAZOLE [Concomitant]
     Indication: GASTRITIS
     Dosage: ONE TABLET AS NEEDED (DEPENDING OF CRISIS)
     Dates: start: 20020101
  3. COLTRAX [Concomitant]
     Indication: MUSCLE RELAXANT THERAPY
     Dosage: 8 MG (TWO TABLETS OF 4MG), DAILY
     Dates: start: 20111201
  4. PRISTIQ [Suspect]
     Indication: MYALGIA
     Dosage: 50 MG (ONE TABLET), 1X/DAY
     Route: 048
     Dates: start: 20110101, end: 20120222
  5. CYMBALTA [Concomitant]
     Indication: NEUROPATHY PERIPHERAL
     Dosage: 30 MG (ONE TABLET), DAILY
     Dates: start: 20111101
  6. MUSCULARE [Concomitant]
     Indication: MUSCLE RELAXANT THERAPY
     Dosage: 10 MG (ONE TABLET), DAILY
     Dates: start: 20120201

REACTIONS (5)
  - WEIGHT INCREASED [None]
  - CRYING [None]
  - BREAST DISORDER [None]
  - FATIGUE [None]
  - SPINAL DISORDER [None]
